FAERS Safety Report 5326640-3 (Version None)
Quarter: 2007Q2

REPORT INFORMATION
  Report Type: 
  Country: None (occurrence: None)
  Receive Date: 20070516
  Receipt Date: 20070504
  Transmission Date: 20071010
  Serious: Yes (Hospitalization)
  Sender: FDA-Public Use
  Company Number: US-PFIZER INC-2004222550US

PATIENT
  Sex: Male
  Weight: 81.6 kg

DRUGS (10)
  1. SU-011,248 [Suspect]
     Indication: METASTATIC RENAL CELL CARCINOMA
     Route: 048
     Dates: start: 20040609, end: 20040705
  2. LOTREL [Concomitant]
  3. FUROSEMIDE [Concomitant]
  4. DEXAMETHASONE 0.5MG TAB [Concomitant]
  5. COMPAZINE [Concomitant]
  6. RESTORIL [Concomitant]
  7. OXYCONTIN [Concomitant]
  8. MIRALAX [Concomitant]
  9. GLYCERIN [Concomitant]
  10. LORTAB [Concomitant]

REACTIONS (3)
  - PURPURA [None]
  - STOMATITIS [None]
  - THROMBOCYTOPENIA [None]
